FAERS Safety Report 20865636 (Version 2)
Quarter: 2022Q2

REPORT INFORMATION
  Report Type: Spontaneous
  Country: DE (occurrence: DE)
  Receive Date: 20220524
  Receipt Date: 20220601
  Transmission Date: 20220720
  Serious: Yes (Death, Other)
  Sender: FDA-Public Use
  Company Number: DE-CELLTRION INC.-2022DE007455

PATIENT

DRUGS (4)
  1. RITUXIMAB [Suspect]
     Active Substance: RITUXIMAB
     Indication: Product used for unknown indication
     Route: 064
  2. CAPLACIZUMAB [Suspect]
     Active Substance: CAPLACIZUMAB
     Indication: Product used for unknown indication
     Route: 064
  3. CYCLOSPORINE [Suspect]
     Active Substance: CYCLOSPORINE
     Indication: Product used for unknown indication
     Route: 064
  4. AZATHIOPRINE [Concomitant]
     Active Substance: AZATHIOPRINE

REACTIONS (4)
  - Foetal death [Fatal]
  - Foetal growth restriction [Fatal]
  - Foetal exposure during pregnancy [Fatal]
  - Off label use [Unknown]
